FAERS Safety Report 7902339-1 (Version None)
Quarter: 2011Q4

REPORT INFORMATION
  Report Type: 
  Country: None (occurrence: None)
  Receive Date: 20111108
  Receipt Date: 20111102
  Transmission Date: 20120403
  Serious: Yes (Hospitalization, Other)
  Sender: FDA-Public Use
  Company Number: NZ-B.I. PHARMACEUTICALS,INC./RIDGEFIELD-2011-AU-01652AU

PATIENT
  Sex: Male
  Weight: 73 kg

DRUGS (13)
  1. PRADAXA [Suspect]
     Indication: ATRIAL FIBRILLATION
     Dosage: 220 MG
     Dates: start: 20110718, end: 20110728
  2. TERAZOSIN HCL [Concomitant]
     Dosage: 2 MG
     Route: 048
  3. CARVEDILOL [Concomitant]
     Dosage: 6.25 MG
     Route: 048
  4. SPIRONOLACTONE [Concomitant]
     Dosage: 25 MG
     Route: 048
  5. ACCUPRIL [Concomitant]
     Dosage: 5 MG
     Route: 048
  6. ACARBOSE [Concomitant]
     Dosage: 150 MG
     Route: 048
  7. LATANOPROST [Concomitant]
  8. SIMVASTATIN [Concomitant]
     Dosage: 10 MG
     Route: 048
  9. DURIDE [Concomitant]
     Dosage: 120 MG
     Route: 048
  10. FUROSEMIDE [Concomitant]
     Dosage: 160 MG
     Route: 048
  11. PROTAPHANE [Concomitant]
  12. OMEPRAZOLE [Concomitant]
     Dosage: 20 MG
     Route: 048
  13. MUCILAX [Concomitant]

REACTIONS (3)
  - RECTAL HAEMORRHAGE [None]
  - RECTAL CANCER [None]
  - COLON CANCER [None]
